FAERS Safety Report 6220112-X (Version None)
Quarter: 2009Q2

REPORT INFORMATION
  Report Type: 
  Country: None (occurrence: None)
  Receive Date: 20090609
  Receipt Date: 20090605
  Transmission Date: 20091009
  Serious: Yes (Hospitalization, Other)
  Sender: FDA-Public Use
  Company Number: DE-ROXANE LABORATORIES, INC.-2009-RO-00559RO

PATIENT
  Age: 55 Year
  Sex: Female
  Weight: 36 kg

DRUGS (10)
  1. AZATHIOPRINE [Suspect]
     Indication: MYASTHENIA GRAVIS
  2. AZATHIOPRINE [Suspect]
     Indication: COLITIS ULCERATIVE
  3. STEROID [Suspect]
     Indication: COLITIS ULCERATIVE
  4. MESALAZINE [Suspect]
     Indication: COLITIS ULCERATIVE
  5. FOSCARNET SODIUM [Concomitant]
     Indication: CYTOMEGALOVIRUS INFECTION
  6. CIDOFOVIR [Concomitant]
     Indication: CYTOMEGALOVIRUS INFECTION
  7. MYCOPHENOLATE MOFETIL [Concomitant]
     Indication: IMMUNOSUPPRESSION
  8. CYTOTECT [Concomitant]
     Indication: CYTOMEGALOVIRUS INFECTION
  9. PARENTRAL NUTRITION [Concomitant]
     Indication: COLITIS ULCERATIVE
  10. GANCICLOVIR [Concomitant]

REACTIONS (5)
  - COLITIS ULCERATIVE [None]
  - CYTOMEGALOVIRUS INFECTION [None]
  - HYPOGAMMAGLOBULINAEMIA [None]
  - LEUKOPENIA [None]
  - THYMOMA MALIGNANT [None]
